FAERS Safety Report 23710006 (Version 2)
Quarter: 2025Q1

REPORT INFORMATION
  Report Type: Report from Study
  Country: BR (occurrence: BR)
  Receive Date: 20240405
  Receipt Date: 20250304
  Transmission Date: 20250409
  Serious: No
  Sender: CELLTRION
  Company Number: BR-CELLTRION INC.-2024BR007872

PATIENT

DRUGS (2)
  1. INFLIXIMAB-DYYB [Suspect]
     Active Substance: INFLIXIMAB-DYYB
     Indication: Colitis ulcerative
     Route: 042
     Dates: start: 20220910
  2. MESALAMINE [Concomitant]
     Active Substance: MESALAMINE
     Indication: Colitis ulcerative
     Route: 048

REACTIONS (3)
  - Dengue fever [Recovered/Resolved]
  - Intentional dose omission [Recovered/Resolved]
  - Therapeutic response shortened [Recovered/Resolved]

NARRATIVE: CASE EVENT DATE: 20240302
